FAERS Safety Report 4997785-2 (Version None)
Quarter: 2006Q2

REPORT INFORMATION
  Report Type: 
  Country: None (occurrence: None)
  Receive Date: 20060510
  Receipt Date: 20060503
  Transmission Date: 20061013
  Serious: Yes (Hospitalization)
  Sender: FDA-Public Use
  Company Number: CA-JNJFOC-20060304150

PATIENT
  Age: 51 Year
  Sex: Female
  Weight: 77.11 kg

DRUGS (3)
  1. DURAGESIC-100 [Suspect]
     Route: 062
  2. TYLENOL W/ CODEINE NO. 3 [Concomitant]
  3. TYLENOL W/ CODEINE NO. 3 [Concomitant]
     Indication: BREAKTHROUGH PAIN

REACTIONS (3)
  - MYOCARDIAL INFARCTION [None]
  - PHARMACEUTICAL PRODUCT COMPLAINT [None]
  - THERAPEUTIC RESPONSE DECREASED [None]
